FAERS Safety Report 8558850-6 (Version None)
Quarter: 2012Q3

REPORT INFORMATION
  Report Type: 
  Country: None (occurrence: None)
  Receive Date: 20120801
  Receipt Date: 20120723
  Transmission Date: 20120928
  Serious: Yes (Death, Hospitalization, Other)
  Sender: FDA-Public Use
  Company Number: US-MSD-1207USA009871

PATIENT

DRUGS (12)
  1. FORMOTEROL FUMARATE [Suspect]
     Dosage: 12 MICROGRAM, UNK
  2. OMEPRAZOLE [Suspect]
     Dosage: 20 MG, QD
     Route: 048
  3. PANTOPRAZOLE [Concomitant]
     Dosage: 20 MG, UNK
     Route: 048
  4. LEVOTHYROXINE SODIUM [Suspect]
     Dosage: 100 MICROGRAM, QD
     Route: 048
  5. RASILEZ [Suspect]
     Dosage: UNK
     Route: 048
  6. PLAVIX [Suspect]
     Dosage: 75 MG, QD
     Route: 048
  7. PROPAFENONE HYDROCHLORIDE [Suspect]
     Dosage: 300 MG, UNK
     Route: 048
  8. ZOCOR [Suspect]
     Dosage: 20 MG, QD
     Route: 048
  9. FUROSEMIDE [Suspect]
     Dosage: 40 MG, UNK
     Route: 048
  10. DIOVAN HCT [Suspect]
     Route: 048
  11. ARIXTRA [Concomitant]
     Dosage: 7.5 MG, UNK
     Route: 058
  12. PENTAERYTHRITOL TETRANITRATE [Suspect]
     Dosage: 50 MG, QD
     Route: 048

REACTIONS (6)
  - LUMBAR SPINAL STENOSIS [None]
  - OEDEMA [None]
  - INTERVERTEBRAL DISC PROTRUSION [None]
  - SEPSIS [None]
  - CHRONIC OBSTRUCTIVE PULMONARY DISEASE [None]
  - MULTI-ORGAN FAILURE [None]
